FAERS Safety Report 7281530-4 (Version None)
Quarter: 2011Q1

REPORT INFORMATION
  Report Type: 
  Country: None (occurrence: None)
  Receive Date: 20110208
  Receipt Date: 20110203
  Transmission Date: 20110831
  Serious: Yes (Other)
  Sender: FDA-Public Use
  Company Number: US-PFIZER INC-2011025260

PATIENT
  Sex: Female
  Weight: 53.061 kg

DRUGS (2)
  1. SYNTHROID [Concomitant]
     Indication: HYPOTHYROIDISM
     Dosage: UNK
  2. ZOLOFT [Suspect]
     Indication: PREMENSTRUAL SYNDROME
     Dosage: 50 MG, 1X/DAY
     Route: 048
     Dates: start: 20100501, end: 20110101

REACTIONS (6)
  - MEDICATION ERROR [None]
  - HALLUCINATION [None]
  - WITHDRAWAL SYNDROME [None]
  - CEREBRAL DISORDER [None]
  - STRABISMUS [None]
  - HEADACHE [None]
